FAERS Safety Report 6464588-1 (Version None)
Quarter: 2009Q4

REPORT INFORMATION
  Report Type: 
  Country: None (occurrence: None)
  Receive Date: 20091201
  Receipt Date: 20091120
  Transmission Date: 20100525
  Serious: Yes (Other)
  Sender: FDA-Public Use
  Company Number: DE-GENENTECH-284555

PATIENT
  Sex: Male

DRUGS (5)
  1. RITUXIMAB [Suspect]
     Indication: NON-HODGKIN'S LYMPHOMA
     Dosage: 700 MG, 1/WEEK
     Route: 042
     Dates: start: 20080101
  2. RITUXIMAB [Suspect]
     Dosage: 700 MG, 8/WEEK
     Route: 042
     Dates: start: 20080416
  3. TORADOL [Concomitant]
     Indication: DRUG USE FOR UNKNOWN INDICATION
     Dosage: UNK
  4. VOTUM (GERMANY) [Concomitant]
     Indication: DRUG USE FOR UNKNOWN INDICATION
     Dosage: UNK
  5. FELODIPINE [Concomitant]
     Indication: DRUG USE FOR UNKNOWN INDICATION
     Dosage: UNK

REACTIONS (4)
  - DYSPNOEA [None]
  - ERYTHEMA [None]
  - FATIGUE [None]
  - POLYNEUROPATHY [None]
